FAERS Safety Report 6603044-4 (Version None)
Quarter: 2010Q1

REPORT INFORMATION
  Report Type: 
  Country: None (occurrence: None)
  Receive Date: 20100226
  Receipt Date: 20100219
  Transmission Date: 20100710
  Serious: Yes (Death, Hospitalization)
  Sender: FDA-Public Use
  Company Number: DE-ELI_LILLY_AND_COMPANY-DE200702004191

PATIENT
  Sex: Male
  Weight: 78 kg

DRUGS (4)
  1. GEMCITABINE HCL [Suspect]
     Indication: NON-SMALL CELL LUNG CANCER
     Dosage: 1200 ON DAY 1 AND 8 EVERY 3 WEEKS
     Dates: start: 20061221
  2. CETUXIMAB [Suspect]
     Indication: NON-SMALL CELL LUNG CANCER
     Dosage: 400 MG/M2, DAILY (1/D)
     Dates: start: 20061221, end: 20061221
  3. CETUXIMAB [Suspect]
     Dosage: 250 MG/M2, WEEKLY (1/W)
     Route: 042
  4. CARBOPLATIN [Suspect]
     Indication: NON-SMALL CELL LUNG CANCER
     Dosage: AUC 5 ON DAY 1 EVERY 3 WEEKS
     Route: 042
     Dates: start: 20061221

REACTIONS (2)
  - GENERAL PHYSICAL HEALTH DETERIORATION [None]
  - HEMIPARESIS [None]
